FAERS Safety Report 7348334-5 (Version None)
Quarter: 2011Q1

REPORT INFORMATION
  Report Type: 
  Country: None (occurrence: None)
  Receive Date: 20110311
  Receipt Date: 20110213
  Transmission Date: 20110831
  Serious: No
  Sender: FDA-Public Use
  Company Number: US-B.I. PHARMACEUTICALS,INC./RIDGEFIELD-2011-BP-05449BP

PATIENT
  Sex: Female
  Weight: 54.43 kg

DRUGS (7)
  1. DIOVAN [Concomitant]
     Indication: HYPERTENSION
  2. TAPAZOLE [Concomitant]
     Indication: THYROID DISORDER
     Dates: start: 20050101
  3. TAPAZOLE [Concomitant]
     Dates: start: 20101001
  4. LIPITOR [Concomitant]
     Indication: BLOOD CHOLESTEROL INCREASED
  5. PRADAXA [Suspect]
     Indication: ATRIAL FIBRILLATION
     Dosage: 300 MG
     Route: 048
     Dates: start: 20110101
  6. BYSTOLIC [Concomitant]
     Indication: TACHYCARDIA
  7. BYSTOLIC [Concomitant]
     Indication: ATRIAL FIBRILLATION

REACTIONS (2)
  - ABDOMINAL DISCOMFORT [None]
  - OESOPHAGEAL IRRITATION [None]
